FAERS Safety Report 6037287-8 (Version None)
Quarter: 2009Q1

REPORT INFORMATION
  Report Type: 
  Country: None (occurrence: None)
  Receive Date: 20090114
  Receipt Date: 20090109
  Transmission Date: 20090719
  Serious: Yes (Other)
  Sender: FDA-Public Use
  Company Number: B0553964A

PATIENT
  Age: 77 Year
  Sex: Male

DRUGS (2)
  1. LEUKERAN [Suspect]
     Dosage: 4MG PER DAY
     Route: 048
     Dates: start: 20080723
  2. LOSEC MUPS [Concomitant]
     Route: 048

REACTIONS (3)
  - DRUG INEFFECTIVE [None]
  - ERYTHEMA MULTIFORME [None]
  - SKIN LESION [None]
